FAERS Safety Report 10371056 (Version 1)
Quarter: 2014Q3

REPORT INFORMATION
  Report Type: Spontaneous
  Country: DE (occurrence: DE)
  Receive Date: 20140808
  Receipt Date: 20140808
  Transmission Date: 20150326
  Serious: Yes (Hospitalization)
  Sender: FDA-Public Use
  Company Number: DE-BAYER-2014-118360

PATIENT
  Age: 60 Year
  Sex: Male

DRUGS (1)
  1. ULTRAGRAF [Suspect]
     Active Substance: IOPROMIDE
     Indication: IMAGING PROCEDURE
     Dosage: 100 ML, ONCE

REACTIONS (6)
  - Dyspnoea [Unknown]
  - Erythema [Unknown]
  - Flushing [Unknown]
  - Postural reflex impairment [Unknown]
  - Anxiety [Unknown]
  - Muscle spasticity [Unknown]
